FAERS Safety Report 19017455 (Version 1)
Quarter: 2021Q1

REPORT INFORMATION
  Report Type: Spontaneous
  Country: US (occurrence: US)
  Receive Date: 20210317
  Receipt Date: 20210317
  Transmission Date: 20210420
  Serious: Yes (Hospitalization, Other)
  Sender: FDA-Public Use
  Company Number: US-VISTAPHARM, INC.-VER202103-000945

PATIENT
  Age: 18 Month
  Sex: Female

DRUGS (1)
  1. METHADONE [Suspect]
     Active Substance: METHADONE HYDROCHLORIDE
     Indication: PRODUCT USED FOR UNKNOWN INDICATION
     Dosage: 140 MG (LIQUID PREPARATION)
     Route: 048

REACTIONS (6)
  - Sedation [Unknown]
  - Respiratory failure [Recovered/Resolved]
  - Toxicity to various agents [Unknown]
  - Ventricular extrasystoles [Unknown]
  - Bradypnoea [Recovered/Resolved]
  - Miosis [Unknown]
